FAERS Safety Report 5794581-3 (Version None)
Quarter: 2008Q3

REPORT INFORMATION
  Report Type: 
  Country: None (occurrence: None)
  Receive Date: 20080612
  Receipt Date: 20080612
  Transmission Date: 20090109
  Serious: Yes (Life-Threatening, Hospitalization)
  Sender: FDA-Public Use
  Company Number: 2008AL007357

PATIENT
  Age: 73 Year
  Sex: Female

DRUGS (11)
  1. MELOXICAM [Suspect]
     Dosage: PO
     Route: 048
  2. ATENOLOL [Concomitant]
  3. EZETIMIBE [Suspect]
  4. SIMVASTATIN [Concomitant]
  5. BENDROFLUMETHIAZIDE [Suspect]
  6. BETAHISTINE [Suspect]
  7. CALCICHEW D3 [Suspect]
  8. ADENDRONIC ACID [Suspect]
  9. ASPIRIN [Concomitant]
  10. DILTIAZEM [Concomitant]
  11. DOTHIEPIN HYDROCHLORIDE [Concomitant]

REACTIONS (1)
  - ISCHAEMIC STROKE [None]
